FAERS Safety Report 23762888 (Version 1)
Quarter: 2024Q2

REPORT INFORMATION
  Report Type: Spontaneous
  Country: US (occurrence: US)
  Receive Date: 20240419
  Receipt Date: 20240419
  Transmission Date: 20240717
  Serious: No
  Sender: FDA-Public Use
  Company Number: US-SA-SAC20240415000207

PATIENT
  Age: 47 Year
  Sex: Male

DRUGS (7)
  1. DUPIXENT [Suspect]
     Active Substance: DUPILUMAB
     Indication: Dermatitis atopic
     Dosage: 1 DF, QOW
     Route: 058
     Dates: start: 20201223
  2. AZASITE [Concomitant]
     Active Substance: AZITHROMYCIN MONOHYDRATE
  3. DESOXIMETASONE [Concomitant]
     Active Substance: DESOXIMETASONE
  4. CICLOPIROX [Concomitant]
     Active Substance: CICLOPIROX\TOCOPHEROL
  5. CLOBETASOL [Concomitant]
     Active Substance: CLOBETASOL
  6. VALACYCLOVIR [Concomitant]
     Active Substance: VALACYCLOVIR HYDROCHLORIDE
  7. CICLOPIROX [Concomitant]
     Active Substance: CICLOPIROX\TOCOPHEROL

REACTIONS (1)
  - Injection site pruritus [Recovered/Resolved]

NARRATIVE: CASE EVENT DATE: 20240201
